FAERS Safety Report 25161644 (Version 1)
Quarter: 2025Q2

REPORT INFORMATION
  Report Type: Spontaneous
  Country: US (occurrence: None)
  Receive Date: 20250402
  Receipt Date: 20250402
  Transmission Date: 20250716
  Serious: Yes (Death, Life-Threatening, Hospitalization, Other)
  Sender: FDA-CTU
  Company Number: None

PATIENT

DRUGS (2)
  1. LEVOPHED [Suspect]
     Active Substance: NOREPINEPHRINE BITARTRATE
  2. DEVICE [Suspect]
     Active Substance: DEVICE

REACTIONS (4)
  - Drug delivery system malfunction [None]
  - Incorrect drug administration rate [None]
  - Incorrect drug administration rate [None]
  - Device safety feature issue [None]
